FAERS Safety Report 21671014 (Version 1)
Quarter: 2022Q4

REPORT INFORMATION
  Report Type: Spontaneous
  Country: TW (occurrence: TW)
  Receive Date: 20221202
  Receipt Date: 20221202
  Transmission Date: 20230113
  Serious: Yes (Hospitalization, Other)
  Sender: FDA-Public Use
  Company Number: None

PATIENT
  Age: 83 Year
  Sex: Male
  Weight: 60 kg

DRUGS (10)
  1. FUROSEMIDE [Suspect]
     Active Substance: FUROSEMIDE
     Indication: Pulmonary oedema
     Route: 042
  2. NITROGLYCERIN [Suspect]
     Active Substance: NITROGLYCERIN
     Indication: Pulmonary oedema
     Route: 060
  3. DOPAMINE [Concomitant]
     Active Substance: DOPAMINE HYDROCHLORIDE
     Indication: Acute myocardial infarction
     Dosage: 5 MICROGRAM/KG/MIN
     Route: 065
  4. DEXTROSE [Concomitant]
     Active Substance: DEXTROSE
     Indication: Product used for unknown indication
     Route: 042
  5. SODIUM CHLORIDE [Concomitant]
     Active Substance: SODIUM CHLORIDE
     Indication: Product used for unknown indication
     Route: 042
  6. BUPIVACAINE [Concomitant]
     Active Substance: BUPIVACAINE
     Indication: Spinal anaesthesia
     Route: 065
  7. FENTANYL [Concomitant]
     Active Substance: FENTANYL
     Dosage: 15 MICROGRAM
     Route: 065
  8. FENTANYL [Concomitant]
     Active Substance: FENTANYL
     Dosage: 25 MICROGRAM
     Route: 042
  9. MIDAZOLAM [Concomitant]
     Active Substance: MIDAZOLAM
     Route: 042
  10. DIGOXIN [Concomitant]
     Active Substance: DIGOXIN
     Route: 042

REACTIONS (3)
  - Haemodynamic instability [Recovered/Resolved]
  - Hypoxia [Recovered/Resolved]
  - Condition aggravated [Recovered/Resolved]
